FAERS Safety Report 24970641 (Version 2)
Quarter: 2025Q3

REPORT INFORMATION
  Report Type: Spontaneous
  Country: EU (occurrence: None)
  Receive Date: 20250214
  Receipt Date: 20250816
  Transmission Date: 20251020
  Serious: Yes (Other)
  Sender: ALEXION PHARMACEUTICALS
  Company Number: EU-AstraZeneca-2013SE22451

PATIENT
  Age: 58 Year
  Sex: Male

DRUGS (4)
  1. NEXIUM [Suspect]
     Active Substance: ESOMEPRAZOLE MAGNESIUM
  2. NEXIUM [Suspect]
     Active Substance: ESOMEPRAZOLE MAGNESIUM
  3. PANTOPRAZOLE [Suspect]
     Active Substance: PANTOPRAZOLE
  4. TEMAZEPAM [Concomitant]
     Active Substance: TEMAZEPAM

REACTIONS (6)
  - Tinnitus [Unknown]
  - Sleep disorder [Unknown]
  - Arrhythmia [Unknown]
  - Tinnitus [Unknown]
  - Insomnia [Unknown]
  - Taste disorder [Unknown]

NARRATIVE: CASE EVENT DATE: 20130101
